FAERS Safety Report 21489271 (Version 2)
Quarter: 2022Q4

REPORT INFORMATION
  Report Type: Spontaneous
  Country: IT (occurrence: IT)
  Receive Date: 20221021
  Receipt Date: 20221110
  Transmission Date: 20230112
  Serious: Yes (Hospitalization)
  Sender: FDA-Public Use
  Company Number: IT-MINISAL02-888743

PATIENT
  Sex: Female

DRUGS (3)
  1. BROMAZEPAM [Suspect]
     Active Substance: BROMAZEPAM
     Indication: Product used for unknown indication
     Dosage: REPORTED VOLUNTARY INTAKE OF A BOTTLE OF BROMAZEPAM, QUANTITY NOT SPECIFIED
     Route: 048
     Dates: start: 20220913, end: 20220913
  2. RAMIPRIL [Suspect]
     Active Substance: RAMIPRIL
     Indication: Product used for unknown indication
     Dosage: 5 MILLIGRAM  (REPORTED UNSPECIFIED INTENTIONAL INTAKE OF 1 PACKET OF RAMIPRIL 5 MG)
     Route: 048
     Dates: start: 20220913, end: 20220913
  3. NORVASC [Suspect]
     Active Substance: AMLODIPINE BESYLATE
     Indication: Product used for unknown indication
     Dosage: 5 MILLIGRAM (REPORTED UNSPECIFIED INTAKE OF 1 PACKET OF NORVASC 5 MG)
     Route: 048
     Dates: start: 20220913, end: 20220913

REACTIONS (4)
  - Sopor [Not Recovered/Not Resolved]
  - Hypotension [Recovering/Resolving]
  - Somnolence [Not Recovered/Not Resolved]
  - Intentional overdose [Not Recovered/Not Resolved]

NARRATIVE: CASE EVENT DATE: 20220913
